FAERS Safety Report 6408092-5 (Version None)
Quarter: 2009Q4

REPORT INFORMATION
  Report Type: 
  Country: None (occurrence: None)
  Receive Date: 20091021
  Receipt Date: 20091014
  Transmission Date: 20100525
  Serious: Yes (Hospitalization)
  Sender: FDA-Public Use
  Company Number: JP-WYE-H08873509

PATIENT
  Sex: Female

DRUGS (13)
  1. ZOSYN [Suspect]
     Indication: PERITONITIS BACTERIAL
     Dosage: 13.5 GRAMS DAILY
     Route: 041
     Dates: start: 20090309, end: 20090324
  2. URSO 250 [Concomitant]
     Route: 048
  3. KAYTWO [Concomitant]
     Route: 048
     Dates: end: 20090310
  4. PREDONINE [Concomitant]
     Route: 048
     Dates: end: 20090310
  5. ISOLEUCINE/LEUCINE/VALINE [Concomitant]
     Route: 048
     Dates: end: 20090310
  6. ISOLEUCINE/LEUCINE/VALINE [Concomitant]
     Route: 048
     Dates: start: 20090311
  7. LASIX [Concomitant]
     Route: 048
  8. TORASEMIDE [Concomitant]
     Route: 048
  9. VITAMIN K TAB [Concomitant]
     Route: 048
     Dates: start: 20090311
  10. PREDNISOLONE [Concomitant]
     Route: 048
     Dates: start: 20090311
  11. SULFAMETHOXAZOLE AND TRIMETHOPRIM [Concomitant]
     Dosage: UNKNOWN
     Dates: end: 20090324
  12. ASPARTATE POTASSIUM [Concomitant]
     Route: 048
  13. ALDACTONE [Concomitant]
     Dosage: 50 - 100 MG PER DAY
     Route: 048

REACTIONS (1)
  - INTERSTITIAL LUNG DISEASE [None]
